FAERS Safety Report 17956178 (Version 8)
Quarter: 2022Q2

REPORT INFORMATION
  Report Type: Report from Study
  Country: FR (occurrence: FR)
  Receive Date: 20200629
  Receipt Date: 20220518
  Transmission Date: 20220721
  Serious: Yes (Hospitalization, Other)
  Sender: FDA-Public Use
  Company Number: FR-ABBVIE-20K-056-3462097-00

PATIENT
  Age: 51 Year
  Sex: Female

DRUGS (7)
  1. CARBIDOPA\LEVODOPA [Suspect]
     Active Substance: CARBIDOPA\LEVODOPA
     Indication: Parkinson^s disease
     Route: 050
     Dates: start: 201702, end: 202203
  2. CARBIDOPA\LEVODOPA [Suspect]
     Active Substance: CARBIDOPA\LEVODOPA
     Dosage: MD: 8 ML, DAY FLOW: 4.7 ML FROM 7 AM TO 9 PM, NIGHT FLOW: 4.5 ML FROM 9 PM TO 7 AM
     Route: 050
     Dates: start: 202203, end: 202203
  3. CARBIDOPA\LEVODOPA [Suspect]
     Active Substance: CARBIDOPA\LEVODOPA
     Dosage: MORNING DOSE 8ML, DAY FLOW, 4.9ML FROM 7AM TO 9PM, NIGHT FLOW, 4.5ML FROM 9PM TO 7AM
     Route: 050
     Dates: start: 202203
  4. CARBIDOPA\LEVODOPA [Suspect]
     Active Substance: CARBIDOPA\LEVODOPA
     Route: 050
     Dates: start: 202203, end: 202204
  5. CARBIDOPA\LEVODOPA [Suspect]
     Active Substance: CARBIDOPA\LEVODOPA
     Dosage: MORNING DOSE 8ML, DAY FLOW 5.4ML/H 7AM TO 9 PM, NIGHT FLOW4.8ML 9PM TO 7 AM, EXTRA DOSE4ML
     Route: 050
     Dates: start: 202204
  6. FRESUBIN HP ENERGY [Concomitant]
     Indication: Product used for unknown indication
     Dosage: 1 BAG 500ML FROM 7AM TO 10:30AM, 150ML/H
     Dates: start: 20220325, end: 2022
  7. FRESUBIN HP ENERGY [Concomitant]
     Dosage: 1 BAG 500ML, 150ML/H
     Dates: start: 20220415

REACTIONS (9)
  - Urinary tract infection [Unknown]
  - Malnutrition [Not Recovered/Not Resolved]
  - Hypophagia [Not Recovered/Not Resolved]
  - Fluid intake reduced [Not Recovered/Not Resolved]
  - Dehydration [Not Recovered/Not Resolved]
  - Weight decreased [Not Recovered/Not Resolved]
  - Hallucination [Not Recovered/Not Resolved]
  - Enteral nutrition [Unknown]
  - Diarrhoea [Not Recovered/Not Resolved]

NARRATIVE: CASE EVENT DATE: 20200619
